FAERS Safety Report 4583875-5 (Version None)
Quarter: 2005Q1

REPORT INFORMATION
  Report Type: 
  Country: None (occurrence: None)
  Receive Date: 20050211
  Receipt Date: 20050124
  Transmission Date: 20050727
  Serious: No
  Sender: FDA-Public Use
  Company Number: 10001

PATIENT
  Age: 90 Year
  Sex: Male
  Weight: 82 kg

DRUGS (8)
  1. AMIODARONE HCL [Suspect]
     Indication: HEART RATE ABNORMAL
     Dosage: 900 G DAILY IV
     Route: 042
     Dates: start: 20050123, end: 20050124
  2. ASPIRIN [Concomitant]
  3. DIGOXIN [Concomitant]
  4. DILTIAZEM [Concomitant]
  5. HEPARIN [Concomitant]
  6. METOCLOPRAMIDE [Concomitant]
  7. METOPROLOL TARTRATE [Concomitant]
  8. OMEPRAZOLE [Concomitant]

REACTIONS (2)
  - EXTRAVASATION [None]
  - INFUSION SITE REACTION [None]
